FAERS Safety Report 10261262 (Version 1)
Quarter: 2014Q2

REPORT INFORMATION
  Report Type: Spontaneous
  Country: PH (occurrence: PH)
  Receive Date: 20140626
  Receipt Date: 20140626
  Transmission Date: 20141212
  Serious: Yes (Other)
  Sender: FDA-Public Use
  Company Number: PH-BAYER-2014-092702

PATIENT
  Age: 33 Year
  Sex: Female

DRUGS (6)
  1. NIFEDIPINE [Suspect]
     Indication: TOCOLYSIS
     Dosage: 10 MG, Q4HR
  2. NIFEDIPINE [Suspect]
     Indication: TOCOLYSIS
     Dosage: 10 MG, QID
  3. SILDENAFIL [Concomitant]
     Indication: PULMONARY ARTERIAL HYPERTENSION
     Dosage: 50 MG, TID
  4. DEXAMETHASONE [Concomitant]
     Dosage: 6 MG, UNK
     Route: 030
  5. OXYGEN [Concomitant]
     Dosage: UNK UNK, CONT
     Route: 045
  6. OXYGEN [Concomitant]
     Dosage: UNK UNK, CONT
     Route: 045

REACTIONS (3)
  - Breech presentation [None]
  - Exposure during pregnancy [None]
  - Off label use [None]
